FAERS Safety Report 17759454 (Version 1)
Quarter: 2020Q2

REPORT INFORMATION
  Report Type: Spontaneous
  Country: MX (occurrence: MX)
  Receive Date: 20200508
  Receipt Date: 20200508
  Transmission Date: 20200714
  Serious: Yes (Death, Other)
  Sender: FDA-Public Use
  Company Number: MX-ADVANZ PHARMA-202004004823

PATIENT

DRUGS (2)
  1. HYDROXYCHLOROQUINE [Suspect]
     Active Substance: HYDROXYCHLOROQUINE
     Indication: COVID-19
     Dosage: 200 MG, BID
     Dates: start: 20200419, end: 20200424
  2. HYDROXYCHLOROQUINE [Suspect]
     Active Substance: HYDROXYCHLOROQUINE
     Indication: PRODUCT USE IN UNAPPROVED INDICATION

REACTIONS (4)
  - Off label use [Unknown]
  - Haemodynamic instability [Fatal]
  - Renal impairment [Fatal]
  - Cardiac arrest [Fatal]

NARRATIVE: CASE EVENT DATE: 202004
